FAERS Safety Report 24869868 (Version 1)
Quarter: 2025Q1

REPORT INFORMATION
  Report Type: Spontaneous
  Country: FR (occurrence: FR)
  Receive Date: 20250121
  Receipt Date: 20250121
  Transmission Date: 20250409
  Serious: Yes (Death, Hospitalization)
  Sender: MYLAN
  Company Number: FR-MYLANLABS-2006097396

PATIENT
  Age: 48 Year
  Sex: Female

DRUGS (6)
  1. XANAX [Suspect]
     Active Substance: ALPRAZOLAM
     Indication: Product used for unknown indication
     Route: 048
  2. DANTRIUM [Suspect]
     Active Substance: DANTROLENE SODIUM
     Indication: Product used for unknown indication
     Dosage: 150 MILLIGRAM, QD
     Route: 048
     Dates: start: 2004
  3. DAFALGAN [Suspect]
     Active Substance: ACETAMINOPHEN
     Indication: Product used for unknown indication
     Dosage: DAILY
     Route: 048
  4. TRAMADOL HYDROCHLORIDE [Suspect]
     Active Substance: TRAMADOL HYDROCHLORIDE
     Indication: Product used for unknown indication
     Dosage: 100 MILLIGRAM, QD
     Route: 065
  5. ADENOSINE PHOSPHATE\DEOXYRIBONUCLIEC ACID [Suspect]
     Active Substance: ADENOSINE PHOSPHATE\DEOXYRIBONUCLIEC ACID
     Indication: Product used for unknown indication
     Route: 048
  6. REVAXIS [Suspect]
     Active Substance: DIPHTHERIA AND TETANUS TOXOIDS AND POLIOVIRUS VACCINE ANTIGENS
     Indication: Product used for unknown indication
     Route: 065
     Dates: start: 20060713, end: 20060713

REACTIONS (8)
  - Rhabdomyolysis [Fatal]
  - Metabolic acidosis [Fatal]
  - Hepatitis fulminant [Fatal]
  - Abdominal pain [Fatal]
  - Acute kidney injury [Fatal]
  - Aspartate aminotransferase increased [Fatal]
  - Alanine aminotransferase increased [Fatal]
  - Fatigue [Unknown]

NARRATIVE: CASE EVENT DATE: 20051201
